FAERS Safety Report 19706060 (Version 1)
Quarter: 2021Q3

REPORT INFORMATION
  Report Type: Spontaneous
  Country: FR (occurrence: FR)
  Receive Date: 20210817
  Receipt Date: 20210817
  Transmission Date: 20211014
  Serious: Yes (Life-Threatening, Hospitalization)
  Sender: FDA-Public Use
  Company Number: FR-TEVA-2021-FR-1941811

PATIENT
  Age: 32 Year
  Sex: Male

DRUGS (4)
  1. DIAZEPAM. [Suspect]
     Active Substance: DIAZEPAM
     Route: 065
  2. COCAINE [Suspect]
     Active Substance: COCAINE
     Route: 065
  3. PREGABALINE [Suspect]
     Active Substance: PREGABALIN
     Route: 065
  4. CHLORHYDRATE DE METHADONE [Suspect]
     Active Substance: METHADONE HYDROCHLORIDE
     Route: 065

REACTIONS (2)
  - Depressed level of consciousness [Recovered/Resolved]
  - Intentional product misuse [Recovered/Resolved]
